FAERS Safety Report 20222782 (Version 1)
Quarter: 2021Q4

REPORT INFORMATION
  Report Type: Spontaneous
  Country: US (occurrence: US)
  Receive Date: 20211223
  Receipt Date: 20211223
  Transmission Date: 20220303
  Serious: No
  Sender: FDA-Public Use
  Company Number: US-GW PHARMA-202112USGW06330

PATIENT

DRUGS (1)
  1. EPIDIOLEX [Suspect]
     Active Substance: CANNABIDIOL
     Indication: Epilepsy
     Dosage: UNK (DOSE INCREASED TO 400 MG BID SCHEDULE TO BE DELIVERED ON 21 DEC 2021)
     Route: 048
     Dates: start: 202012

REACTIONS (1)
  - Weight increased [Unknown]
